FAERS Safety Report 24857928 (Version 2)
Quarter: 2025Q3

REPORT INFORMATION
  Report Type: Spontaneous
  Country: HK (occurrence: HK)
  Receive Date: 20250117
  Receipt Date: 20250802
  Transmission Date: 20251021
  Serious: Yes (Death, Other)
  Sender: ALEXION PHARMACEUTICALS
  Company Number: HK-ASTRAZENECA-202501GLO013645HK

PATIENT
  Age: 79 Year
  Sex: Male

DRUGS (6)
  1. OSIMERTINIB [Suspect]
     Active Substance: OSIMERTINIB
     Indication: Lung adenocarcinoma
  2. OSIMERTINIB [Suspect]
     Active Substance: OSIMERTINIB
     Dosage: 80 MILLIGRAM, QD
  3. PACLITAXEL [Concomitant]
     Active Substance: PACLITAXEL
     Indication: Non-small cell lung cancer
  4. CARBOPLATIN [Suspect]
     Active Substance: CARBOPLATIN
     Indication: Non-small cell lung cancer
  5. TEPOTINIB [Suspect]
     Active Substance: TEPOTINIB
     Dosage: 450 MILLIGRAM, QD
     Route: 065
  6. TEPOTINIB [Suspect]
     Active Substance: TEPOTINIB
     Dosage: 225 MILLIGRAM, QD
     Route: 065

REACTIONS (4)
  - Malignant neoplasm progression [Fatal]
  - Metastases to bone [Fatal]
  - Metastases to liver [Fatal]
  - Metastases to lung [Fatal]
